FAERS Safety Report 19162823 (Version 5)
Quarter: 2021Q2

REPORT INFORMATION
  Report Type: Report from Study
  Country: US (occurrence: US)
  Receive Date: 20210421
  Receipt Date: 20210528
  Transmission Date: 20210717
  Serious: No
  Sender: FDA-Public Use
  Company Number: US-B.I. PHARMACEUTICALS,INC./RIDGEFIELD-2021-BI-095282

PATIENT
  Age: 82 Year
  Sex: Female

DRUGS (5)
  1. METOPROLOL. [Concomitant]
     Active Substance: METOPROLOL
     Indication: HYPERTENSION
     Dosage: 50 MG PO BID
     Route: 048
     Dates: end: 2021
  2. METOPROLOL. [Concomitant]
     Active Substance: METOPROLOL
     Dosage: 75 MG PO BID
     Route: 048
     Dates: start: 2021
  3. CARDIZEM [Concomitant]
     Active Substance: DILTIAZEM HYDROCHLORIDE
     Indication: HYPERTENSION
  4. OFEV [Suspect]
     Active Substance: NINTEDANIB
     Indication: IDIOPATHIC PULMONARY FIBROSIS
     Dosage: OFEV 150 MG TWICE DAILY
     Route: 048
     Dates: start: 20210325, end: 20210409
  5. SILDENAFIL. [Concomitant]
     Active Substance: SILDENAFIL
     Indication: PULMONARY ARTERIAL HYPERTENSION

REACTIONS (7)
  - Blood pressure increased [Recovering/Resolving]
  - Heart rate irregular [Recovering/Resolving]
  - Hiatus hernia [Recovered/Resolved]
  - Hypertension [Unknown]
  - Blood pressure fluctuation [Recovering/Resolving]
  - Heart rate increased [Recovering/Resolving]
  - Hypertension [Not Recovered/Not Resolved]

NARRATIVE: CASE EVENT DATE: 2021
